FAERS Safety Report 8340015-4 (Version None)
Quarter: 2012Q2

REPORT INFORMATION
  Report Type: 
  Country: None (occurrence: None)
  Receive Date: 20120507
  Receipt Date: 20120502
  Transmission Date: 20120825
  Serious: Yes (Other)
  Sender: FDA-Public Use
  Company Number: NO-PFIZER INC-2012095844

PATIENT
  Age: 64 Year
  Sex: Male

DRUGS (6)
  1. ASPIRIN [Concomitant]
     Dosage: UNK
     Dates: start: 20090101
  2. VARENICLINE TARTRATE [Suspect]
     Indication: SMOKING CESSATION THERAPY
     Dosage: UNK
     Dates: end: 20100301
  3. SIMVASTATIN [Concomitant]
     Dosage: UNK
     Dates: start: 20090101
  4. METOPROLOL [Concomitant]
     Dosage: UNK
     Route: 048
     Dates: start: 20090101
  5. VARENICLINE TARTRATE [Suspect]
     Dosage: UNK
     Dates: start: 20100301, end: 20100101
  6. PLAVIX [Concomitant]
     Dosage: UNK
     Dates: start: 20090101

REACTIONS (9)
  - CHEST PAIN [None]
  - DYSPNOEA [None]
  - ABNORMAL DREAMS [None]
  - BLOOD CARBON MONOXIDE INCREASED [None]
  - ELECTROCARDIOGRAM ST SEGMENT DEPRESSION [None]
  - CHRONIC OBSTRUCTIVE PULMONARY DISEASE [None]
  - WEIGHT INCREASED [None]
  - FATIGUE [None]
  - SLEEP DISORDER [None]
